FAERS Safety Report 5533061-7 (Version None)
Quarter: 2007Q4

REPORT INFORMATION
  Report Type: 
  Country: None (occurrence: None)
  Receive Date: 20071204
  Receipt Date: 20071203
  Transmission Date: 20080405
  Serious: Yes (Other)
  Sender: FDA-Public Use
  Company Number: A0696888A

PATIENT
  Age: 26 Year
  Sex: Female

DRUGS (2)
  1. ALLI [Suspect]
     Route: 048
     Dates: start: 20071111, end: 20071113
  2. MULTI-VITAMIN [Concomitant]

REACTIONS (11)
  - BLINDNESS [None]
  - CHEST PAIN [None]
  - DIZZINESS [None]
  - FEELING OF BODY TEMPERATURE CHANGE [None]
  - HEART RATE INCREASED [None]
  - HOT FLUSH [None]
  - INFLAMMATION [None]
  - INSOMNIA [None]
  - MALAISE [None]
  - MYOCARDIAL INFARCTION [None]
  - TREMOR [None]
